FAERS Safety Report 4311652-9 (Version None)
Quarter: 2004Q1

REPORT INFORMATION
  Report Type: 
  Country: None (occurrence: None)
  Receive Date: 20040302
  Receipt Date: 20031111
  Transmission Date: 20041129
  Serious: No
  Sender: FDA-Public Use
  Company Number: 200328371BWH

PATIENT
  Age: 60 Year
  Sex: Male
  Weight: 92.9874 kg

DRUGS (4)
  1. LEVITRA [Suspect]
     Indication: ERECTILE DYSFUNCTION
     Dosage: ORAL
     Route: 048
  2. FLOMAX [Concomitant]
  3. VIAGRA [Concomitant]
  4. VITAMINS NOS [Concomitant]

REACTIONS (1)
  - NO ADVERSE EFFECT [None]
